FAERS Safety Report 7510302-8 (Version None)
Quarter: 2011Q2

REPORT INFORMATION
  Report Type: 
  Country: None (occurrence: None)
  Receive Date: 20110527
  Receipt Date: 20110516
  Transmission Date: 20111010
  Serious: Yes (Other)
  Sender: FDA-Public Use
  Company Number: JP-UCBSA-025222

PATIENT
  Sex: Male
  Weight: 8.5 kg

DRUGS (10)
  1. KEPPRA [Suspect]
     Dosage: STARTED AT LOW  DOSE;GRADUALLY INCREASED
     Route: 048
     Dates: start: 20101031
  2. KEPPRA [Suspect]
     Route: 048
     Dates: end: 20110128
  3. KEPPRA [Suspect]
     Route: 048
     Dates: start: 20110215
  4. PHENYTOIN [Suspect]
     Route: 048
     Dates: end: 20110128
  5. KEPPRA [Suspect]
     Route: 048
     Dates: start: 20110215
  6. PHENOBAL [Concomitant]
     Route: 048
     Dates: start: 20110215
  7. TOPIRAMATE [Concomitant]
     Route: 048
     Dates: start: 20110305
  8. KEPPRA [Suspect]
     Indication: EPILEPSY
     Dosage: STARTED AT LOW  DOSE;GRADUALLY INCREASED
     Route: 048
     Dates: start: 20101031
  9. TOPIRAMATE [Concomitant]
     Route: 048
  10. KEPPRA [Suspect]
     Route: 048
     Dates: end: 20110128

REACTIONS (2)
  - GAMMA-GLUTAMYLTRANSFERASE INCREASED [None]
  - ILEUS [None]
